FAERS Safety Report 15698859 (Version 2)
Quarter: 2019Q2

REPORT INFORMATION
  Report Type: Spontaneous
  Country: FR (occurrence: FR)
  Receive Date: 20181207
  Receipt Date: 20190627
  Transmission Date: 20190711
  Serious: Yes (Other)
  Sender: FDA-Public Use
  Company Number: FR-BIOVITRUM-2018FR1496

PATIENT
  Age: 6 Year
  Sex: Female

DRUGS (2)
  1. PARACETAMOL [Concomitant]
     Active Substance: ACETAMINOPHEN
  2. KINERET [Suspect]
     Active Substance: ANAKINRA
     Indication: STILL^S DISEASE
     Dates: start: 20181022

REACTIONS (5)
  - Cell death [Unknown]
  - Accidental overdose [Unknown]
  - Decreased appetite [Unknown]
  - Serum ferritin increased [Unknown]
  - Asthenia [Unknown]
